FAERS Safety Report 19698555 (Version 1)
Quarter: 2021Q3

REPORT INFORMATION
  Report Type: Other
  Country: US (occurrence: US)
  Receive Date: 20210813
  Receipt Date: 20210813
  Transmission Date: 20211014
  Serious: No
  Sender: FDA-Public Use
  Company Number: US-BIOVITRUM-2021US7479

PATIENT
  Age: 55 Year
  Sex: Male

DRUGS (1)
  1. AVATROMBOPAG [Suspect]
     Active Substance: AVATROMBOPAG
     Indication: IMMUNE THROMBOCYTOPENIA

REACTIONS (2)
  - Drug ineffective [Unknown]
  - Headache [Unknown]
